FAERS Safety Report 5072701-6 (Version None)
Quarter: 2006Q3

REPORT INFORMATION
  Report Type: 
  Country: None (occurrence: None)
  Receive Date: 20060807
  Receipt Date: 20060803
  Transmission Date: 20061208
  Serious: Yes (Death)
  Sender: FDA-Public Use
  Company Number: FI-ROCHE-457811

PATIENT
  Age: 39 Year
  Sex: Male

DRUGS (3)
  1. MYCOPHENOLATE MOFETIL [Suspect]
     Route: 065
  2. TACROLIMUS [Suspect]
     Route: 065
  3. METHYLPREDNISOLONE [Suspect]
     Route: 065

REACTIONS (12)
  - INTRA-ABDOMINAL HAEMORRHAGE [None]
  - METASTASES TO BONE MARROW [None]
  - METASTASES TO HEART [None]
  - METASTASES TO KIDNEY [None]
  - METASTASES TO LIVER [None]
  - METASTASES TO LUNG [None]
  - METASTASES TO LYMPH NODES [None]
  - METASTASES TO SPINE [None]
  - METASTASES TO SPLEEN [None]
  - PROSTATE CANCER [None]
  - SMALL CELL CARCINOMA [None]
  - SPLENIC RUPTURE [None]
